FAERS Safety Report 8084746-2 (Version None)
Quarter: 2012Q1

REPORT INFORMATION
  Report Type: 
  Country: None (occurrence: None)
  Receive Date: 20120128
  Receipt Date: 20110314
  Transmission Date: 20120608
  Serious: No
  Sender: FDA-Public Use
  Company Number: US-ABBOTT-11P-163-0712295-00

PATIENT
  Age: 56 Year
  Sex: Female

DRUGS (3)
  1. METHOTREXATE [Concomitant]
     Indication: RHEUMATOID ARTHRITIS
  2. HUMIRA [Suspect]
     Route: 058
     Dates: start: 20110314
  3. HUMIRA [Suspect]
     Indication: RHEUMATOID ARTHRITIS
     Dosage: 1ST DOSE, ONCE
     Route: 058
     Dates: start: 20110225, end: 20110225

REACTIONS (3)
  - INFLUENZA [None]
  - FEELING ABNORMAL [None]
  - PYREXIA [None]
